FAERS Safety Report 23728720 (Version 2)
Quarter: 2024Q2

REPORT INFORMATION
  Report Type: Spontaneous
  Country: CO (occurrence: CO)
  Receive Date: 20240410
  Receipt Date: 20240419
  Transmission Date: 20240715
  Serious: Yes (Other)
  Sender: FDA-Public Use
  Company Number: CO-GILEAD-2024-0668099

PATIENT

DRUGS (1)
  1. EPCLUSA [Suspect]
     Active Substance: SOFOSBUVIR\VELPATASVIR
     Indication: Product used for unknown indication
     Route: 065

REACTIONS (2)
  - Drug-induced liver injury [Not Recovered/Not Resolved]
  - Liver disorder [Not Recovered/Not Resolved]
